FAERS Safety Report 4674182-0 (Version None)
Quarter: 2005Q2

REPORT INFORMATION
  Report Type: 
  Country: None (occurrence: None)
  Receive Date: 20050524
  Receipt Date: 20050512
  Transmission Date: 20051028
  Serious: Yes (Other)
  Sender: FDA-Public Use
  Company Number: MC200500436

PATIENT
  Sex: 0

DRUGS (1)
  1. ANGIOMAX [Suspect]
     Dosage: UNK
     Route: 065

REACTIONS (2)
  - CEREBROVASCULAR ACCIDENT [None]
  - THROMBOSIS IN DEVICE [None]
